FAERS Safety Report 8016741-3 (Version None)
Quarter: 2012Q1

REPORT INFORMATION
  Report Type: 
  Country: None (occurrence: None)
  Receive Date: 20120102
  Receipt Date: 20111222
  Transmission Date: 20120608
  Serious: Yes (Other)
  Sender: FDA-Public Use
  Company Number: US-BIOGENIDEC-2011BI048593

PATIENT
  Age: 20 Year
  Sex: Female

DRUGS (1)
  1. AVONEX [Suspect]
     Indication: MULTIPLE SCLEROSIS
     Route: 030
     Dates: start: 20110329

REACTIONS (7)
  - EPILEPSY [None]
  - ARTHRALGIA [None]
  - MEMORY IMPAIRMENT [None]
  - INSOMNIA [None]
  - EXERCISE TOLERANCE DECREASED [None]
  - FATIGUE [None]
  - MULTIPLE SCLEROSIS RELAPSE [None]
